FAERS Safety Report 21649861 (Version 1)
Quarter: 2022Q4

REPORT INFORMATION
  Report Type: Report from Study
  Country: RU (occurrence: RU)
  Receive Date: 20221128
  Receipt Date: 20221128
  Transmission Date: 20230113
  Serious: Yes (Death, Other)
  Sender: FDA-Public Use
  Company Number: RU-TEVA-2022-RU-2829086

PATIENT
  Age: 39 Year
  Sex: Female

DRUGS (2)
  1. FLUDARABINE [Suspect]
     Active Substance: FLUDARABINE PHOSPHATE
     Indication: Lymphodepletion
     Dosage: (30 G/M2) 5, 4, 3 AND 2DAYS PRIOR TO UNSPECIFIED CAR-T CELL THERAPY
     Route: 065
  2. CYCLOPHOSPHAMIDE [Suspect]
     Active Substance: CYCLOPHOSPHAMIDE
     Indication: Lymphodepletion
     Dosage: TWO DAYS PRIOR TO CAR-T CELL INFUSION
     Route: 065

REACTIONS (1)
  - Infection [Fatal]
